FAERS Safety Report 4677148-X (Version None)
Quarter: 2005Q2

REPORT INFORMATION
  Report Type: 
  Country: None (occurrence: None)
  Receive Date: 20050525
  Receipt Date: 20050525
  Transmission Date: 20051028
  Serious: No
  Sender: FDA-Public Use
  Company Number: None

PATIENT
  Sex: Male
  Weight: 111 kg

DRUGS (6)
  1. DOXORUBICIN HCL [Suspect]
     Dosage: 50 MGGM 2 IV ON DAY 1 X 4 CYCLES
     Route: 042
     Dates: start: 20050223
  2. GEMCITABINE [Suspect]
     Dosage: 200 MG /M2 IV OVER 2 HOURS ON DAY 1 X 4 CYCLES PLUS
     Route: 042
  3. PEGFILGRASTIM [Suspect]
     Dosage: 6 MG SQ ON DAY 2 X 4 CYCLES
     Route: 058
  4. PACLITAXEL [Suspect]
     Dosage: 150 MG/M2 IV OVER 3 HOURS ON DAY 1 X 4 CYCLES
     Route: 042
  5. CISPLATIN [Suspect]
     Dosage: 60 MG/M2 IV OVER 30-60 MIN X 4 CYCLES
     Route: 042
  6. PEGFILGRASTIM [Suspect]
     Dosage: 6 MG SQ ON DAY 2 X 4 CYCLES
     Route: 058

REACTIONS (11)
  - ANAEMIA [None]
  - ANOREXIA [None]
  - ASTHENIA [None]
  - DIARRHOEA [None]
  - HAEMATURIA [None]
  - HYPOMAGNESAEMIA [None]
  - HYPOVOLAEMIA [None]
  - ORAL INTAKE REDUCED [None]
  - RASH [None]
  - RENAL FAILURE [None]
  - THROMBOCYTOPENIA [None]
